FAERS Safety Report 19107403 (Version 1)
Quarter: 2021Q2

REPORT INFORMATION
  Report Type: Spontaneous
  Country: US (occurrence: US)
  Receive Date: 20210408
  Receipt Date: 20210408
  Transmission Date: 20210717
  Serious: Yes (Hospitalization)
  Sender: FDA-Public Use
  Company Number: None

PATIENT
  Age: 58 Year
  Sex: Male
  Weight: 125 kg

DRUGS (1)
  1. EMPAGLIFLOZIN (EMPAGLIFLOZIN 25MG TAB) [Suspect]
     Active Substance: EMPAGLIFLOZIN
     Indication: DIABETES MELLITUS
     Dosage: ?          OTHER FREQUENCY:AM;?
     Route: 048
     Dates: end: 20210319

REACTIONS (5)
  - Metabolic acidosis [None]
  - Atrial fibrillation [None]
  - Anaemia [None]
  - Ketoacidosis [None]
  - Pulmonary embolism [None]

NARRATIVE: CASE EVENT DATE: 20210317
